FAERS Safety Report 18550796 (Version 1)
Quarter: 2020Q4

REPORT INFORMATION
  Report Type: Spontaneous
  Country: JP (occurrence: JP)
  Receive Date: 20201126
  Receipt Date: 20201126
  Transmission Date: 20210114
  Serious: Yes (Other)
  Sender: FDA-Public Use
  Company Number: JP-PFIZER INC-2020466980

PATIENT
  Age: 7 Decade
  Sex: Female

DRUGS (1)
  1. LIPITOR [Suspect]
     Active Substance: ATORVASTATIN CALCIUM
     Dosage: 20 MG/DAY, UNKNOWN FREQ.
     Route: 048

REACTIONS (1)
  - Cerebral infarction [Recovered/Resolved]
